FAERS Safety Report 5091011-4 (Version None)
Quarter: 2006Q3

REPORT INFORMATION
  Report Type: 
  Country: None (occurrence: None)
  Receive Date: 20060829
  Receipt Date: 20060502
  Transmission Date: 20061208
  Serious: No
  Sender: FDA-Public Use
  Company Number: 0015507

PATIENT
  Age: 80 Year
  Sex: Female

DRUGS (1)
  1. ZOVIRAX [Suspect]
     Indication: PRURITUS

REACTIONS (1)
  - DRUG INEFFECTIVE [None]
